FAERS Safety Report 15454436 (Version 1)
Quarter: 2018Q3

REPORT INFORMATION
  Report Type: Spontaneous
  Country: US (occurrence: US)
  Receive Date: 20180927
  Receipt Date: 20180927
  Transmission Date: 20181010
  Serious: Yes (Life-Threatening, Hospitalization, Disabling)
  Sender: FDA-Public Use
  Company Number: None

PATIENT
  Age: 64 Year
  Sex: Male
  Weight: 80.74 kg

DRUGS (17)
  1. WEST WHEAT GRASS [Concomitant]
     Active Substance: PASCOPYRUM SMITHII POLLEN
  2. POTASSIUM [Concomitant]
     Active Substance: POTASSIUM
  3. (ILLEGIBLE) BERRIES [Concomitant]
  4. LITHIUM. [Suspect]
     Active Substance: LITHIUM
     Indication: PRODUCT USED FOR UNKNOWN INDICATION
  5. LISINOPRIL. [Concomitant]
     Active Substance: LISINOPRIL
  6. MSM [Concomitant]
     Active Substance: DIMETHYL SULFONE
  7. HAWAIIAN ASTAXANTAEN [Concomitant]
  8. GARLIC OIL [Concomitant]
     Active Substance: GARLIC OIL
  9. COD LIVER OIL [Concomitant]
     Active Substance: COD LIVER OIL
  10. LORAYCEPS [Concomitant]
  11. (ILLEGIBLE) BERRIES [Concomitant]
  12. FLAXSEED [Concomitant]
     Active Substance: FLAX SEED
  13. RABA [Concomitant]
  14. ALC [Concomitant]
  15. 81MG ASPIRIN [Concomitant]
  16. SOVEREIGN SILVER [Concomitant]
  17. MILK THISTLE [Concomitant]
     Active Substance: DIETARY SUPPLEMENT\HERBALS\MILK THISTLE

REACTIONS (8)
  - Vomiting [None]
  - Vision blurred [None]
  - Pollakiuria [None]
  - Coordination abnormal [None]
  - Muscular weakness [None]
  - Tremor [None]
  - Somnolence [None]
  - Tinnitus [None]

NARRATIVE: CASE EVENT DATE: 1989
